FAERS Safety Report 5448228-6 (Version None)
Quarter: 2007Q3

REPORT INFORMATION
  Report Type: 
  Country: None (occurrence: None)
  Receive Date: 20070911
  Receipt Date: 20070903
  Transmission Date: 20080115
  Serious: Yes (Hospitalization)
  Sender: FDA-Public Use
  Company Number: PHBS2007US14450

PATIENT
  Age: 86 Year
  Sex: Female

DRUGS (2)
  1. STALEVO 100 [Suspect]
     Indication: PARKINSON'S DISEASE
     Dosage: UNK, TID
     Route: 065
  2. ASPIRIN [Suspect]
     Dosage: 81 MG/D
     Route: 065

REACTIONS (3)
  - ANALGESIC DRUG LEVEL INCREASED [None]
  - DRUG INTERACTION [None]
  - ENDOCARDITIS [None]
